FAERS Safety Report 8829740 (Version 1)
Quarter: 2012Q4

REPORT INFORMATION
  Report Type: 
  Country: US (occurrence: US)
  Receive Date: 20121008
  Receipt Date: 20121008
  Transmission Date: 20130627
  Serious: Yes (Hospitalization, Other)
  Sender: FDA-Public Use
  Company Number: US-009507513-1209USA001634

PATIENT

DRUGS (3)
  1. FOSAMAX [Suspect]
     Indication: OSTEOPOROSIS
     Dosage: 70 mg, qw
     Route: 048
     Dates: start: 1999
  2. SYNTHROID [Concomitant]
  3. PLAVIX [Concomitant]

REACTIONS (6)
  - Hip arthroplasty [Recovered/Resolved]
  - Hip arthroplasty [Recovered/Resolved]
  - Cartilage atrophy [Not Recovered/Not Resolved]
  - Osteoarthritis [Unknown]
  - Marrow hyperplasia [Unknown]
  - Synovitis [Unknown]
